FAERS Safety Report 6084776-6 (Version None)
Quarter: 2009Q1

REPORT INFORMATION
  Report Type: 
  Country: None (occurrence: None)
  Receive Date: 20090217
  Receipt Date: 20090202
  Transmission Date: 20090719
  Serious: Yes (Life-Threatening)
  Sender: FDA-Public Use
  Company Number: DSM-2009-00098

PATIENT
  Age: 82 Year
  Sex: Female

DRUGS (3)
  1. OLMESARTAN MEDOXOMIL [Suspect]
     Indication: HYPERTENSION
     Dosage: 20 MG (20 MG, 1 IN 1 D),ORAL
     Route: 048
     Dates: start: 20060301, end: 20080401
  2. TERTENSIF RETARD (INDAPAMIDE) (INDAPAMIDE) [Concomitant]
  3. ATROVASTATIN (ATROVASTATIN) (ATROVASTATIN) [Concomitant]

REACTIONS (1)
  - THROMBOCYTOPENIA [None]
